FAERS Safety Report 25426091 (Version 1)
Quarter: 2025Q2

REPORT INFORMATION
  Report Type: Spontaneous
  Country: US (occurrence: US)
  Receive Date: 20250612
  Receipt Date: 20250612
  Transmission Date: 20250717
  Serious: Yes (Other)
  Sender: ALEXION PHARMACEUTICALS
  Company Number: US-AstraZeneca-CH-00886452A

PATIENT

DRUGS (1)
  1. IMFINZI [Suspect]
     Active Substance: DURVALUMAB
     Indication: Non-small cell lung cancer
     Route: 065

REACTIONS (14)
  - Bladder disorder [Unknown]
  - Renal impairment [Unknown]
  - Derealisation [Unknown]
  - Memory impairment [Unknown]
  - Peripheral swelling [Unknown]
  - Pruritus [Unknown]
  - Fatigue [Unknown]
  - Cytokine release syndrome [Unknown]
  - Pain [Unknown]
  - Bone density abnormal [Unknown]
  - Bone disorder [Unknown]
  - Multi-organ disorder [Unknown]
  - Immune system disorder [Unknown]
  - Diplopia [Unknown]
